FAERS Safety Report 6656806-1 (Version None)
Quarter: 2010Q1

REPORT INFORMATION
  Report Type: 
  Country: None (occurrence: None)
  Receive Date: 20100324
  Receipt Date: 20100311
  Transmission Date: 20100710
  Serious: Yes (Other)
  Sender: FDA-Public Use
  Company Number: 004002

PATIENT
  Sex: Male

DRUGS (2)
  1. CIMZIA [Suspect]
     Indication: CROHN'S DISEASE
     Dosage: 400 MG  1X/MONTH SUBCUTANEOUS), 400 MG 1X/3 WEEKS SUBCUTANEOUS
     Route: 058
     Dates: start: 20081224
  2. CIMZIA [Suspect]

REACTIONS (6)
  - CONDITION AGGRAVATED [None]
  - CROHN'S DISEASE [None]
  - DIARRHOEA [None]
  - FISTULA DISCHARGE [None]
  - INTERVERTEBRAL DISC PROTRUSION [None]
  - SCIATIC NERVE NEUROPATHY [None]
